FAERS Safety Report 16994546 (Version 2)
Quarter: 2020Q1

REPORT INFORMATION
  Report Type: Spontaneous
  Country: US (occurrence: US)
  Receive Date: 20191105
  Receipt Date: 20200117
  Transmission Date: 20200409
  Serious: Yes (Death, Life-Threatening, Hospitalization, Other)
  Sender: FDA-Public Use
  Company Number: US-SCIEGEN PHARMACEUTICALS INC-2019SCILIT00332

PATIENT
  Age: 28 Year
  Sex: Male

DRUGS (4)
  1. BICARBONATE DRIP [Interacting]
     Active Substance: SODIUM BICARBONATE
  2. FAT EMULSION NOS [Interacting]
     Active Substance: EGG PHOSPHOLIPIDS\SAFFLOWER OIL\SOYBEAN OIL
  3. BUPROPION HYDROCHLORIDE. [Suspect]
     Active Substance: BUPROPION HYDROCHLORIDE
  4. VALPROATE-SEMISODIUM [Suspect]
     Active Substance: DIVALPROEX SODIUM

REACTIONS (9)
  - Completed suicide [Fatal]
  - Conduction disorder [Fatal]
  - Hypotension [Fatal]
  - Overdose [Fatal]
  - Bradycardia [Fatal]
  - Lethargy [Fatal]
  - Cardiac arrest [Fatal]
  - Status epilepticus [Fatal]
  - Toxicity to various agents [Fatal]
